FAERS Safety Report 12916275 (Version 1)
Quarter: 2016Q4

REPORT INFORMATION
  Report Type: Spontaneous
  Country: US (occurrence: US)
  Receive Date: 20161107
  Receipt Date: 20161107
  Transmission Date: 20170207
  Serious: Yes (Life-Threatening)
  Sender: FDA-Public Use
  Company Number: None

PATIENT
  Age: 55 Year
  Sex: Female
  Weight: 108.86 kg

DRUGS (21)
  1. HYDROCHLOROTHIAZIDE. [Concomitant]
     Active Substance: HYDROCHLOROTHIAZIDE
  2. HYDRO HCTZ [Concomitant]
  3. MIRALAX [Concomitant]
     Active Substance: POLYETHYLENE GLYCOL 3350
  4. TRIAMCINOLONE [Concomitant]
     Active Substance: TRIAMCINOLONE
  5. MIACALCIN [Concomitant]
     Active Substance: CALCITONIN SALMON
  6. VIACTIV [Concomitant]
     Active Substance: CALCIUM\VITAMIN D\VITAMIN K5
  7. FLONASE ALLERGY RELIEF [Concomitant]
     Active Substance: FLUTICASONE PROPIONATE
  8. CALCIUM [Concomitant]
     Active Substance: CALCIUM
  9. TRIAMCINOLONE ACETONIDE. [Concomitant]
     Active Substance: TRIAMCINOLONE ACETONIDE
  10. QVAR [Concomitant]
     Active Substance: BECLOMETHASONE DIPROPIONATE
  11. POTASSIUM CHLORIDE. [Concomitant]
     Active Substance: POTASSIUM CHLORIDE
  12. VENTOLIN SPRAY [Concomitant]
  13. CLONIDINE. [Concomitant]
     Active Substance: CLONIDINE
  14. GLUCOSAMINE [Concomitant]
     Active Substance: GLUCOSAMINE
  15. PROTONIX [Concomitant]
     Active Substance: PANTOPRAZOLE SODIUM
  16. BENZONATATE. [Concomitant]
     Active Substance: BENZONATATE
  17. AMLODIPINE BESYLATE. [Concomitant]
     Active Substance: AMLODIPINE BESYLATE
  18. VENTOLIN HFA [Concomitant]
     Active Substance: ALBUTEROL SULFATE
  19. DULOXETINE DR 60MG CAP [Suspect]
     Active Substance: DULOXETINE
     Indication: PAIN MANAGEMENT
     Dosage: DULOXETINE DR 60 MG CAP/DULOXETINE 20 MG
     Dates: start: 201301, end: 201412
  20. METFORMIN [Concomitant]
     Active Substance: METFORMIN HYDROCHLORIDE
  21. MOBIC [Concomitant]
     Active Substance: MELOXICAM

REACTIONS (11)
  - Anxiety [None]
  - Vertigo [None]
  - Hallucination [None]
  - Panic attack [None]
  - Dizziness [None]
  - Irritability [None]
  - Impaired driving ability [None]
  - Feeling abnormal [None]
  - Nervousness [None]
  - Nightmare [None]
  - Suicidal ideation [None]

NARRATIVE: CASE EVENT DATE: 201303
